FAERS Safety Report 5981878-7 (Version None)
Quarter: 2008Q4

REPORT INFORMATION
  Report Type: 
  Country: None (occurrence: None)
  Receive Date: 20081202
  Receipt Date: 20081120
  Transmission Date: 20090506
  Serious: Yes (Other)
  Sender: FDA-Public Use
  Company Number: 2008SP023197

PATIENT
  Age: 44 Year
  Sex: Female
  Weight: 85.7298 kg

DRUGS (2)
  1. PEG-INTRON [Suspect]
     Indication: HEPATITIS C
     Dosage: SC
     Route: 058
     Dates: start: 20080808
  2. RIBAVIRIN [Suspect]
     Indication: HEPATITIS C
     Dosage: PO
     Route: 048
     Dates: start: 20080808

REACTIONS (17)
  - ANAEMIA [None]
  - ANXIETY [None]
  - ASTHENIA [None]
  - CHAPPED LIPS [None]
  - CONDITION AGGRAVATED [None]
  - DEHYDRATION [None]
  - DEPRESSION [None]
  - DRY MOUTH [None]
  - FATIGUE [None]
  - HYPERSOMNIA [None]
  - INSOMNIA [None]
  - LOSS OF CONSCIOUSNESS [None]
  - MENORRHAGIA [None]
  - VAGINAL HAEMORRHAGE [None]
  - VISION BLURRED [None]
  - WEIGHT DECREASED [None]
  - WHITE BLOOD CELL COUNT INCREASED [None]
